FAERS Safety Report 13800053 (Version 3)
Quarter: 2018Q4

REPORT INFORMATION
  Report Type: Spontaneous
  Country: US (occurrence: US)
  Receive Date: 20170727
  Receipt Date: 20181002
  Transmission Date: 20190204
  Serious: No
  Sender: FDA-Public Use
  Company Number: US-JNJFOC-20170604823

PATIENT
  Age: 4 Decade
  Sex: Male
  Weight: 56.25 kg

DRUGS (2)
  1. MENS ROGAINE EXTRA STRENGTH [Suspect]
     Active Substance: MINOXIDIL
     Indication: ALOPECIA
     Route: 061
  2. MENS ROGAINE EXTRA STRENGTH [Suspect]
     Active Substance: MINOXIDIL
     Route: 061

REACTIONS (8)
  - Drug effect incomplete [Unknown]
  - Acne [Not Recovered/Not Resolved]
  - Erythema [Not Recovered/Not Resolved]
  - Alopecia [Not Recovered/Not Resolved]
  - Fungal skin infection [Unknown]
  - Skin irritation [Not Recovered/Not Resolved]
  - Swelling [Not Recovered/Not Resolved]
  - Pain of skin [Not Recovered/Not Resolved]
